FAERS Safety Report 5715437-8 (Version None)
Quarter: 2008Q2

REPORT INFORMATION
  Report Type: 
  Country: None (occurrence: None)
  Receive Date: 20080423
  Receipt Date: 20080416
  Transmission Date: 20081010
  Serious: Yes (Hospitalization)
  Sender: FDA-Public Use
  Company Number: FR-PFIZER INC-2008034340

PATIENT
  Age: 29 Year
  Sex: Male
  Weight: 77 kg

DRUGS (7)
  1. ATORVASTATIN CALCIUM [Suspect]
     Route: 048
     Dates: start: 20080110, end: 20080101
  2. PLAVIX [Interacting]
     Route: 048
     Dates: start: 20080109
  3. ACETYLSALICYLATE LYSINE [Concomitant]
  4. PERINDOPRIL ERBUMINE [Concomitant]
  5. ESOMEPRAZOLE MAGNESIUM [Concomitant]
  6. BISOPROLOL FUMARATE [Concomitant]
  7. OXAZEPAM [Concomitant]

REACTIONS (2)
  - DRUG INEFFECTIVE [None]
  - DRUG INTERACTION [None]
